FAERS Safety Report 7956567-X (Version None)
Quarter: 2011Q4

REPORT INFORMATION
  Report Type: 
  Country: None (occurrence: None)
  Receive Date: 20111205
  Receipt Date: 20111130
  Transmission Date: 20120403
  Serious: Yes (Other)
  Sender: FDA-Public Use
  Company Number: US-JNJFOC-20110503435

PATIENT
  Sex: Female

DRUGS (5)
  1. LEVAQUIN [Suspect]
     Indication: UPPER RESPIRATORY TRACT INFECTION
     Route: 048
     Dates: start: 20060101
  2. METHYLPREDNISOLONE [Suspect]
     Indication: BRONCHITIS
     Route: 065
  3. AVELOX [Suspect]
     Indication: INFECTION
     Route: 065
  4. ADVAIR DISKUS 100/50 [Suspect]
     Indication: LUNG DISORDER
     Route: 065
  5. LEVAQUIN [Suspect]
     Indication: BRONCHITIS
     Route: 048
     Dates: start: 20060101

REACTIONS (3)
  - TENOSYNOVITIS [None]
  - TENDONITIS [None]
  - PLANTAR FASCIITIS [None]
